FAERS Safety Report 24904190 (Version 1)
Quarter: 2025Q1

REPORT INFORMATION
  Report Type: Spontaneous
  Country: US (occurrence: US)
  Receive Date: 20250130
  Receipt Date: 20250130
  Transmission Date: 20250409
  Serious: Yes (Other)
  Sender: AMGEN
  Company Number: US-AMGEN-USASP2025013005

PATIENT

DRUGS (2)
  1. TALIMOGENE LAHERPAREPVEC [Suspect]
     Active Substance: TALIMOGENE LAHERPAREPVEC
     Indication: Cutaneous lymphoma
     Route: 036
  2. NIVOLUMAB [Concomitant]
     Active Substance: NIVOLUMAB
     Indication: Cutaneous lymphoma
     Route: 065

REACTIONS (1)
  - Cutaneous lymphoma [Unknown]
